FAERS Safety Report 15607332 (Version 2)
Quarter: 2018Q4

REPORT INFORMATION
  Report Type: Spontaneous
  Country: FR (occurrence: SE)
  Receive Date: 20181112
  Receipt Date: 20181128
  Transmission Date: 20190205
  Serious: Yes (Hospitalization, Other)
  Sender: FDA-Public Use
  Company Number: FR-PFIZER INC-K201000594

PATIENT
  Age: 79 Year
  Sex: Female

DRUGS (6)
  1. DIGOXIN. [Interacting]
     Active Substance: DIGOXIN
     Indication: ATRIAL FIBRILLATION
     Dosage: UNK
     Route: 048
  2. TRIATEC (RAMIPRIL) [Interacting]
     Active Substance: RAMIPRIL
     Dosage: 10 MG, UNK
     Route: 048
  3. SPIRONOLACTONE. [Interacting]
     Active Substance: SPIRONOLACTONE
     Dosage: UNK
     Route: 048
     Dates: end: 201002
  4. ALTACE [Suspect]
     Active Substance: RAMIPRIL
     Indication: ATRIAL FIBRILLATION
     Dosage: 10 MG, UNK
     Route: 048
     Dates: end: 20100211
  5. ALTACE [Interacting]
     Active Substance: RAMIPRIL
     Dosage: 10 MG, 1X/DAY
     Route: 048
     Dates: start: 2010
  6. TRIATEC (RAMIPRIL) [Interacting]
     Active Substance: RAMIPRIL
     Dosage: 10 MG, UNK
     Route: 048
     Dates: start: 2010

REACTIONS (5)
  - Hyperkalaemia [Recovered/Resolved]
  - Facial bones fracture [Recovered/Resolved]
  - Cardioactive drug level increased [Recovered/Resolved]
  - Fall [Recovered/Resolved]
  - Drug therapeutic incompatibility [Unknown]

NARRATIVE: CASE EVENT DATE: 20100211
